FAERS Safety Report 22281684 (Version 2)
Quarter: 2023Q2

REPORT INFORMATION
  Report Type: Spontaneous
  Country: US (occurrence: US)
  Receive Date: 20230504
  Receipt Date: 20230608
  Transmission Date: 20230722
  Serious: No
  Sender: FDA-Public Use
  Company Number: US-SANOFI-01594458

PATIENT

DRUGS (1)
  1. SELENIUM SULFIDE [Suspect]
     Active Substance: SELENIUM SULFIDE
     Indication: Seborrhoeic dermatitis
     Dosage: UNK

REACTIONS (2)
  - Seborrhoeic dermatitis [Unknown]
  - Condition aggravated [Unknown]
